FAERS Safety Report 6459973-8 (Version None)
Quarter: 2009Q4

REPORT INFORMATION
  Report Type: 
  Country: None (occurrence: None)
  Receive Date: 20091129
  Receipt Date: 20091117
  Transmission Date: 20100525
  Serious: Yes (Hospitalization)
  Sender: FDA-Public Use
  Company Number: PHEH2009US16231

PATIENT
  Sex: Male

DRUGS (2)
  1. EXJADE [Suspect]
     Indication: LYMPHATIC DISORDER
     Dosage: 2000MG QD PO
     Route: 048
  2. EXJADE [Suspect]
     Indication: BLOOD DISORDER
     Dosage: 500MG BID
     Dates: start: 20091101

REACTIONS (5)
  - DIARRHOEA [None]
  - FAECES DISCOLOURED [None]
  - OXYGEN SATURATION DECREASED [None]
  - RASH [None]
  - RED BLOOD CELL COUNT DECREASED [None]
